FAERS Safety Report 9323803 (Version 1)
Quarter: 2013Q2

REPORT INFORMATION
  Report Type: Spontaneous
  Country: BR (occurrence: BR)
  Receive Date: 20130603
  Receipt Date: 20130603
  Transmission Date: 20140414
  Serious: Yes (Death, Hospitalization)
  Sender: FDA-Public Use
  Company Number: BR-ELI_LILLY_AND_COMPANY-BR201305008165

PATIENT
  Age: 95 Year
  Sex: Female
  Weight: 40 kg

DRUGS (1)
  1. FORTEO [Suspect]
     Indication: OSTEOPOROSIS
     Dosage: 20 UG, QD
     Route: 058
     Dates: start: 2011

REACTIONS (4)
  - Respiratory failure [Fatal]
  - Dysentery [Unknown]
  - Feeling abnormal [Unknown]
  - Asthenia [Unknown]
